FAERS Safety Report 20791089 (Version 2)
Quarter: 2022Q3

REPORT INFORMATION
  Report Type: Report from Study
  Country: US (occurrence: US)
  Receive Date: 20220505
  Receipt Date: 20220809
  Transmission Date: 20221027
  Serious: Yes (Other)
  Sender: FDA-Public Use
  Company Number: US-ABBVIE-22K-163-4379854-00

PATIENT
  Age: 62 Year
  Sex: Female

DRUGS (4)
  1. HUMIRA [Suspect]
     Active Substance: ADALIMUMAB
     Indication: Colitis ulcerative
     Dosage: ON 29TH DAY
     Route: 058
     Dates: start: 20210729, end: 202207
  2. HUMIRA [Suspect]
     Active Substance: ADALIMUMAB
     Route: 058
     Dates: start: 2022
  3. HUMIRA [Suspect]
     Active Substance: ADALIMUMAB
     Indication: Colitis ulcerative
     Dosage: ON DAY 1
     Route: 058
     Dates: start: 20210701, end: 20210701
  4. HUMIRA [Suspect]
     Active Substance: ADALIMUMAB
     Dosage: ON DAY 15
     Route: 058
     Dates: start: 20210715, end: 20210715

REACTIONS (15)
  - Fistula [Unknown]
  - Dialysis [Unknown]
  - Renal transplant [Unknown]
  - Flatulence [Recovered/Resolved]
  - Haemorrhoids [Unknown]
  - Fatigue [Recovered/Resolved]
  - Decreased appetite [Recovered/Resolved]
  - Diarrhoea [Unknown]
  - Frequent bowel movements [Unknown]
  - Flatulence [Unknown]
  - Proctalgia [Unknown]
  - Decreased appetite [Unknown]
  - Anaemia [Unknown]
  - Unevaluable event [Unknown]
  - Asthenia [Unknown]

NARRATIVE: CASE EVENT DATE: 20220409
